FAERS Safety Report 19924355 (Version 1)
Quarter: 2021Q4

REPORT INFORMATION
  Report Type: Spontaneous
  Country: US (occurrence: US)
  Receive Date: 20211006
  Receipt Date: 20211006
  Transmission Date: 20220303
  Serious: Yes (Other)
  Sender: FDA-Public Use
  Company Number: US-GW PHARMA-202109USGW04785

PATIENT

DRUGS (1)
  1. EPIDIOLEX [Suspect]
     Active Substance: CANNABIDIOL
     Indication: Lennox-Gastaut syndrome
     Dosage: 220 MILLIGRAM, FREQUENCY NOT REPORTED
     Route: 048
     Dates: start: 201904

REACTIONS (2)
  - Mood altered [Unknown]
  - Anger [Unknown]

NARRATIVE: CASE EVENT DATE: 20210801
